FAERS Safety Report 8765208 (Version 1)
Quarter: 2012Q4

REPORT INFORMATION
  Report Type: 
  Country: US (occurrence: US)
  Receive Date: 20120903
  Receipt Date: 20120903
  Transmission Date: 20130627
  Serious: No
  Sender: FDA-Public Use
  Company Number: US-PFIZER INC-2012214399

PATIENT
  Sex: Female

DRUGS (1)
  1. ATORVASTATIN CALCIUM [Suspect]
     Dosage: 20 mg, UNK
     Dates: start: 201208, end: 201208

REACTIONS (3)
  - Hypersensitivity [Unknown]
  - Swelling face [Unknown]
  - Pruritus generalised [Unknown]
